FAERS Safety Report 24365493 (Version 1)
Quarter: 2024Q3

REPORT INFORMATION
  Report Type: Spontaneous
  Country: US (occurrence: US)
  Receive Date: 20240926
  Receipt Date: 20240926
  Transmission Date: 20241017
  Serious: No
  Sender: ALCON
  Company Number: US-ALCON LABORATORIES-ALC2023US005158

PATIENT
  Sex: Male

DRUGS (1)
  1. NAPHCON A [Suspect]
     Active Substance: NAPHAZOLINE HYDROCHLORIDE\PHENIRAMINE MALEATE
     Indication: Ocular hyperaemia
     Dosage: A FEW USES
     Route: 047

REACTIONS (1)
  - Drug ineffective [Unknown]
